FAERS Safety Report 5473902-5 (Version None)
Quarter: 2007Q4

REPORT INFORMATION
  Report Type: 
  Country: None (occurrence: None)
  Receive Date: 20071001
  Receipt Date: 20070919
  Transmission Date: 20080405
  Serious: Yes (Other)
  Sender: FDA-Public Use
  Company Number: US-PFIZER INC-2007079424

PATIENT
  Sex: Female
  Weight: 60.454 kg

DRUGS (8)
  1. CHANTIX [Suspect]
     Indication: SMOKING CESSATION THERAPY
     Route: 048
     Dates: start: 20070915, end: 20070918
  2. LAMICTAL [Concomitant]
  3. PROTONIX [Concomitant]
  4. MECLIZINE [Concomitant]
  5. PHENERGAN ^AVENTIS PHARMA^ [Concomitant]
  6. LIPITOR [Concomitant]
  7. VICOPROFEN [Concomitant]
  8. KLONOPIN [Concomitant]

REACTIONS (14)
  - ABNORMAL DREAMS [None]
  - BLOOD URINE PRESENT [None]
  - CHROMATURIA [None]
  - CONSTIPATION [None]
  - DRUG INEFFECTIVE [None]
  - FATIGUE [None]
  - HALLUCINATION [None]
  - HEADACHE [None]
  - INSOMNIA [None]
  - MENTAL IMPAIRMENT [None]
  - MOOD ALTERED [None]
  - NIGHTMARE [None]
  - RENAL PAIN [None]
  - SUICIDAL IDEATION [None]
